FAERS Safety Report 7198101-0 (Version None)
Quarter: 2010Q4

REPORT INFORMATION
  Report Type: 
  Country: None (occurrence: None)
  Receive Date: 20101223
  Receipt Date: 20101223
  Transmission Date: 20110411
  Serious: Yes (Other)
  Sender: FDA-Public Use
  Company Number: None

PATIENT
  Sex: Male
  Weight: 90.2658 kg

DRUGS (2)
  1. OXALIPLATIN [Suspect]
     Indication: GASTROINTESTINAL DISORDER
     Dosage: 120MG Q3W
     Dates: start: 20101130, end: 20101220
  2. OXALIPLATIN [Suspect]
     Indication: METASTASIS
     Dosage: 120MG Q3W
     Dates: start: 20101130, end: 20101220

REACTIONS (6)
  - CHILLS [None]
  - CONDITION AGGRAVATED [None]
  - INFUSION RELATED REACTION [None]
  - POLLAKIURIA [None]
  - THIRST [None]
  - TREMOR [None]
